FAERS Safety Report 7715785-6 (Version None)
Quarter: 2011Q3

REPORT INFORMATION
  Report Type: 
  Country: None (occurrence: None)
  Receive Date: 20110829
  Receipt Date: 20110822
  Transmission Date: 20111222
  Serious: Yes (Other)
  Sender: FDA-Public Use
  Company Number: US-ELI_LILLY_AND_COMPANY-US201008003008

PATIENT
  Sex: Female
  Weight: 116.1 kg

DRUGS (11)
  1. GLUCOPHAGE [Concomitant]
  2. BYETTA [Suspect]
     Indication: TYPE 2 DIABETES MELLITUS
     Dosage: UNK
     Dates: start: 20061127, end: 20100601
  3. PRILOSEC [Concomitant]
  4. CYMBALTA [Concomitant]
  5. AVANDIA [Concomitant]
  6. ASPIRIN [Concomitant]
  7. EVISTA                                  /SCH/ [Concomitant]
  8. LISINOPRIL [Concomitant]
  9. HUMULIN N [Concomitant]
  10. ALDACTONE [Concomitant]
  11. LIPITOR [Concomitant]

REACTIONS (5)
  - RENAL FAILURE [None]
  - RENAL FAILURE CHRONIC [None]
  - OFF LABEL USE [None]
  - RENAL CYST [None]
  - GLOMERULAR FILTRATION RATE DECREASED [None]
